FAERS Safety Report 17453060 (Version 1)
Quarter: 2020Q1

REPORT INFORMATION
  Report Type: Report from Study
  Country: PL (occurrence: PL)
  Receive Date: 20200224
  Receipt Date: 20200224
  Transmission Date: 20200409
  Serious: Yes (Hospitalization)
  Sender: FDA-Public Use
  Company Number: NVSC2020PL022842

PATIENT
  Age: 42 Year
  Sex: Male
  Weight: 76 kg

DRUGS (2)
  1. OFATUMUMAB [Suspect]
     Active Substance: OFATUMUMAB
     Indication: MULTIPLE SCLEROSIS RELAPSE
     Dosage: 20 MG, QMO
     Route: 058
     Dates: start: 20190819
  2. OFATUMUMAB [Suspect]
     Active Substance: OFATUMUMAB
     Indication: MULTIPLE SCLEROSIS RELAPSE
     Dosage: UNK
     Route: 065

REACTIONS (1)
  - Myocarditis [Not Recovered/Not Resolved]

NARRATIVE: CASE EVENT DATE: 20200120
